FAERS Safety Report 18761004 (Version 3)
Quarter: 2021Q1

REPORT INFORMATION
  Report Type: Report from Study
  Country: GB (occurrence: GB)
  Receive Date: 20210120
  Receipt Date: 20210319
  Transmission Date: 20210419
  Serious: Yes (Other)
  Sender: FDA-Public Use
  Company Number: GB-JNJFOC-20210122193

PATIENT
  Sex: Female

DRUGS (2)
  1. STELARA [Suspect]
     Active Substance: USTEKINUMAB
     Indication: PSORIASIS
     Route: 058
     Dates: start: 20180906
  2. STELARA [Suspect]
     Active Substance: USTEKINUMAB

REACTIONS (4)
  - Post procedural haemorrhage [Recovered/Resolved]
  - Renal neoplasm [Unknown]
  - Herpes zoster [Not Recovered/Not Resolved]
  - Transitional cell carcinoma [Unknown]

NARRATIVE: CASE EVENT DATE: 20190805
